FAERS Safety Report 9993197 (Version 1)
Quarter: 2014Q1

REPORT INFORMATION
  Report Type: Report from Study
  Country: US (occurrence: US)
  Receive Date: 20140310
  Receipt Date: 20140310
  Transmission Date: 20141002
  Serious: No
  Sender: FDA-Public Use
  Company Number: US-ABBVIE-14P-163-1203343-00

PATIENT
  Sex: Female
  Weight: 49.94 kg

DRUGS (4)
  1. LUPRON DEPOT [Suspect]
     Indication: ENDOMETRIOSIS
     Dates: start: 201308
  2. LUPRON DEPOT [Suspect]
     Indication: ENDOMETRIOSIS
     Dates: start: 1993
  3. TOPAMAX [Concomitant]
     Indication: MIGRAINE
  4. BUTALBITAL, ACETAMINOPHEN + CAFFEINE [Concomitant]
     Indication: ANALGESIC THERAPY

REACTIONS (15)
  - Adnexa uteri pain [Recovered/Resolved]
  - Menorrhagia [Recovered/Resolved]
  - Pelvic pain [Recovered/Resolved]
  - Hot flush [Not Recovered/Not Resolved]
  - Hot flush [Recovered/Resolved]
  - Vaginal discharge [Recovered/Resolved]
  - Metrorrhagia [Recovered/Resolved]
  - Abdominal pain [Recovered/Resolved]
  - Ovulation disorder [Recovered/Resolved]
  - Migraine [Not Recovered/Not Resolved]
  - Migraine [Not Recovered/Not Resolved]
  - Endometriosis [Not Recovered/Not Resolved]
  - Product quality issue [Unknown]
  - Endometrial hypertrophy [Unknown]
  - Drug ineffective [Unknown]
